FAERS Safety Report 4621815-0 (Version None)
Quarter: 2005Q1

REPORT INFORMATION
  Report Type: 
  Country: None (occurrence: None)
  Receive Date: 20050328
  Receipt Date: 20050315
  Transmission Date: 20050727
  Serious: Yes (Disabling)
  Sender: FDA-Public Use
  Company Number: 2005046224

PATIENT
  Age: 66 Year
  Sex: Male

DRUGS (7)
  1. VIAGRA [Suspect]
     Indication: ERECTILE DYSFUNCTION
  2. GLIPIZIDE [Concomitant]
  3. METFORMIN HCL [Concomitant]
  4. LISINOPRIL [Concomitant]
  5. FUROSEMIDE [Concomitant]
  6. AMLODIPINEI (AMLODIPINE) [Concomitant]
  7. FLUVASTATIN (FLUVASTATIN) [Concomitant]

REACTIONS (3)
  - FLUSHING [None]
  - HEADACHE [None]
  - OPTIC ISCHAEMIC NEUROPATHY [None]
